FAERS Safety Report 17881724 (Version 1)
Quarter: 2020Q2

REPORT INFORMATION
  Report Type: Spontaneous
  Country: US (occurrence: US)
  Receive Date: 20200610
  Receipt Date: 20200610
  Transmission Date: 20200714
  Serious: Yes (Other)
  Sender: FDA-Public Use
  Company Number: US-SA-2020SA148458

PATIENT

DRUGS (1)
  1. DUPIXENT [Suspect]
     Active Substance: DUPILUMAB
     Indication: DERMATITIS ATOPIC
     Dosage: UNK
     Route: 058

REACTIONS (6)
  - Brain injury [Unknown]
  - Seizure [Unknown]
  - Mouth ulceration [Recovered/Resolved]
  - Dermatitis atopic [Unknown]
  - Drug ineffective [Unknown]
  - Accident [Unknown]
